FAERS Safety Report 9304932 (Version 1)
Quarter: 2013Q2

REPORT INFORMATION
  Report Type: Spontaneous
  Country: US (occurrence: None)
  Receive Date: 20130521
  Receipt Date: 20130521
  Transmission Date: 20140414
  Serious: Yes (Hospitalization)
  Sender: FDA-Public Use
  Company Number: None

PATIENT
  Age: 34 Year
  Sex: Male
  Weight: 60 kg

DRUGS (1)
  1. BUPROPION 150MG XL ? GENERIC [Suspect]
     Route: 048

REACTIONS (2)
  - Tremor [None]
  - Hallucination, auditory [None]
